FAERS Safety Report 8548734-1 (Version None)
Quarter: 2012Q3

REPORT INFORMATION
  Report Type: 
  Country: None (occurrence: None)
  Receive Date: 20120730
  Receipt Date: 20120724
  Transmission Date: 20120928
  Serious: Yes (Other)
  Sender: FDA-Public Use
  Company Number: PHHY2012JP057878

PATIENT
  Age: 73 Year
  Sex: Male

DRUGS (4)
  1. COMTAN [Suspect]
     Indication: PARKINSON'S DISEASE
     Route: 048
  2. PRAMIPEXOLE DIHYDROCHLORIDE [Concomitant]
  3. CABERGOLINE [Concomitant]
     Route: 048
  4. ZONISAMIDE [Concomitant]

REACTIONS (2)
  - BLOOD CREATINE PHOSPHOKINASE INCREASED [None]
  - PAIN IN EXTREMITY [None]
